FAERS Safety Report 6279581-1 (Version None)
Quarter: 2009Q3

REPORT INFORMATION
  Report Type: 
  Country: None (occurrence: None)
  Receive Date: 20090723
  Receipt Date: 20090716
  Transmission Date: 20100115
  Serious: Yes (Other)
  Sender: FDA-Public Use
  Company Number: A0797338A

PATIENT
  Age: 46 Year
  Sex: Female

DRUGS (30)
  1. LAMICTAL [Suspect]
     Dosage: 225MG TWICE PER DAY
     Route: 048
     Dates: start: 19940101
  2. PHENOBARBITAL [Concomitant]
  3. PREDNISONE TAB [Concomitant]
  4. PRILOSEC [Concomitant]
  5. MS CONTIN [Concomitant]
  6. ACETAZOLAMIDE [Concomitant]
  7. ACIDOPHILIS [Concomitant]
  8. FOLIC ACID [Concomitant]
  9. UNSPECIFIED MEDICATION [Concomitant]
  10. IMMUNE GLOBULIN NOS [Concomitant]
     Route: 042
  11. CEPHALEXIN [Concomitant]
  12. LEVOTHYROXINE SODIUM [Concomitant]
  13. MAGNESIUM [Concomitant]
  14. OLIVE LEAF EXTRACT [Concomitant]
  15. VITAMIN D [Concomitant]
  16. VITAMIN B1 TAB [Concomitant]
  17. VITAMIN B-12 [Concomitant]
  18. CYANOCOBALAMIN [Concomitant]
     Route: 045
  19. FORTICAL [Concomitant]
  20. ASTELIN [Concomitant]
  21. ATROVENT [Concomitant]
  22. INTAL [Concomitant]
  23. QVAR 40 [Concomitant]
  24. VENTOLIN [Concomitant]
  25. ALPHAGAN [Concomitant]
  26. PRED FORTE [Concomitant]
  27. RESTASIS [Concomitant]
  28. TRUSOPT [Concomitant]
  29. VIROPTIC [Concomitant]
  30. XALATAN [Concomitant]

REACTIONS (9)
  - BACK INJURY [None]
  - CONVULSION [None]
  - DROOLING [None]
  - DYSARTHRIA [None]
  - FATIGUE [None]
  - GRAND MAL CONVULSION [None]
  - JOINT INJURY [None]
  - LIMB INJURY [None]
  - TREMOR [None]
